FAERS Safety Report 20062707 (Version 1)
Quarter: 2021Q4

REPORT INFORMATION
  Report Type: Spontaneous
  Country: US (occurrence: US)
  Receive Date: 20211112
  Receipt Date: 20211112
  Transmission Date: 20220304
  Serious: No
  Sender: FDA-Public Use
  Company Number: US-PFIZER INC-2021173990

PATIENT
  Age: 40 Year
  Sex: Female
  Weight: 52.16 kg

DRUGS (1)
  1. CHANTIX [Suspect]
     Active Substance: VARENICLINE TARTRATE
     Dosage: 1 MG, TWICE A DAY (1 MG IN THE MORNING AND 1 MG IN THE EVENING)
     Dates: start: 20210225

REACTIONS (1)
  - Abnormal dreams [Unknown]
